FAERS Safety Report 18058657 (Version 2)
Quarter: 2020Q3

REPORT INFORMATION
  Report Type: Spontaneous
  Country: US (occurrence: US)
  Receive Date: 20200723
  Receipt Date: 20200824
  Transmission Date: 20201103
  Serious: No
  Sender: FDA-Public Use
  Company Number: US-GLAXOSMITHKLINE-US2020129080

PATIENT
  Sex: Male

DRUGS (2)
  1. AEROSPAN [Suspect]
     Active Substance: FLUNISOLIDE
     Indication: RESPIRATORY DISORDER
     Dosage: UNK
  2. ADVAIR DISKUS [Suspect]
     Active Substance: FLUTICASONE PROPIONATE\SALMETEROL XINAFOATE
     Indication: RESPIRATORY DISORDER
     Dosage: UNK
     Route: 055

REACTIONS (1)
  - Drug ineffective [Unknown]
